FAERS Safety Report 12631055 (Version 2)
Quarter: 2016Q3

REPORT INFORMATION
  Report Type: Spontaneous
  Country: US (occurrence: US)
  Receive Date: 20160808
  Receipt Date: 20160808
  Transmission Date: 20161109
  Serious: No
  Sender: FDA-Public Use
  Company Number: US-BEH-2015052031

PATIENT
  Age: 69 Year
  Sex: Female
  Weight: 65 kg

DRUGS (32)
  1. VITAMIN C [Concomitant]
     Active Substance: ASCORBIC ACID
     Route: 048
  2. ADVAIR HFA [Concomitant]
     Active Substance: FLUTICASONE PROPIONATE\SALMETEROL XINAFOATE
     Dosage: 500-50 MCG
     Route: 055
  3. COD LIVER OIL [Concomitant]
     Active Substance: COD LIVER OIL
     Dosage: 1250-135 AS DIRECTED
     Route: 048
  4. CITRACAL VITAMIN D [Concomitant]
  5. MUCINEX [Concomitant]
     Active Substance: GUAIFENESIN
     Dosage: 600 MG AS DIRECTED
     Route: 048
  6. ZYRTEC [Concomitant]
     Active Substance: CETIRIZINE HYDROCHLORIDE
     Dosage: EVENINGS
     Route: 048
  7. DIPHENHYDRAMINE. [Concomitant]
     Active Substance: DIPHENHYDRAMINE
     Dosage: AS DIRECTED
     Route: 048
  8. CARTIA XT [Concomitant]
     Active Substance: DILTIAZEM HYDROCHLORIDE
     Dosage: AS DIRECTED
     Route: 048
  9. HIZENTRA [Suspect]
     Active Substance: HUMAN IMMUNOGLOBULIN G
     Dosage: 4 GM 20 ML VIAL; 7 GM WEEKLY
     Route: 058
  10. NASONEX [Concomitant]
     Active Substance: MOMETASONE FUROATE
     Dosage: AS DIRECTED
     Route: 055
  11. LORAZEPAM. [Concomitant]
     Active Substance: LORAZEPAM
     Dosage: AS DIRECTED
     Route: 048
  12. HIZENTRA [Suspect]
     Active Substance: HUMAN IMMUNOGLOBULIN G
     Indication: IMMUNODEFICIENCY COMMON VARIABLE
     Dosage: 2 GM 10 ML VIAL; 7 GM WEEKLY
     Route: 058
  13. HIZENTRA [Suspect]
     Active Substance: HUMAN IMMUNOGLOBULIN G
     Dosage: 1 GM 5 ML VIAL; 7 GM WEEKLY
     Route: 058
  14. VITAMIN C [Concomitant]
     Active Substance: ASCORBIC ACID
     Dosage: AS DIRECTED
     Route: 048
  15. HIZENTRA [Suspect]
     Active Substance: HUMAN IMMUNOGLOBULIN G
     Dosage: 1 GM 5 ML VIAL; 7 GM WEEKLY
     Route: 058
  16. DULCOLAX NOS [Concomitant]
     Active Substance: BISACODYL OR DOCUSATE SODIUM
     Dosage: 2 (5 MG TABLETS) AT BEDTIME
     Route: 048
  17. CENTRUM [Concomitant]
     Active Substance: VITAMINS
     Dosage: .4-18-3500 AS DIRECTED
     Route: 048
  18. ESOMEPRAZOLE MAGNESIUM. [Concomitant]
     Active Substance: ESOMEPRAZOLE MAGNESIUM
     Dosage: 1 DOSE AS DIRECTED
  19. HYDROCHLOROTHIAZIDE. [Concomitant]
     Active Substance: HYDROCHLOROTHIAZIDE
     Dosage: AS DIRECTED
     Route: 048
  20. ASPIRIN. [Concomitant]
     Active Substance: ASPIRIN
     Route: 048
  21. ACETAMINOPHEN. [Concomitant]
     Active Substance: ACETAMINOPHEN
     Dosage: 1 DOSE AS DIRECTED
     Route: 048
  22. EPIPEN [Concomitant]
     Active Substance: EPINEPHRINE
     Indication: ANAPHYLACTIC REACTION
     Dosage: 0.3 MG AS DIRECTED
     Route: 030
  23. LMX [Concomitant]
     Active Substance: LIDOCAINE
     Indication: PREMEDICATION
     Dosage: 4%
     Route: 061
  24. BIOTIN [Concomitant]
     Active Substance: BIOTIN
     Route: 048
  25. HIZENTRA [Suspect]
     Active Substance: HUMAN IMMUNOGLOBULIN G
     Dosage: 2 GM 10 ML VIAL; 7 GM WEEKLY
     Route: 058
  26. OXYGEN. [Concomitant]
     Active Substance: OXYGEN
     Dosage: AS DIRECTED
     Route: 055
  27. PREDNISONE. [Concomitant]
     Active Substance: PREDNISONE
     Dosage: AS DIRECTED
     Route: 048
  28. ALENDRONATE [Concomitant]
     Active Substance: ALENDRONATE SODIUM
     Dosage: AS DIRECTED
     Route: 048
  29. GAS-X [Concomitant]
     Active Substance: DIMETHICONE
     Dosage: 2 AS DIRECTED
     Route: 048
  30. MONTELUKAST [Concomitant]
     Active Substance: MONTELUKAST SODIUM
     Dosage: AS DIRECTED
     Route: 048
  31. SPIRIVA [Concomitant]
     Active Substance: TIOTROPIUM BROMIDE MONOHYDRATE
     Dosage: AS DIRECTED
  32. XOPENEX [Concomitant]
     Active Substance: LEVALBUTEROL HYDROCHLORIDE
     Dosage: 45 MCG AS DIRECTED
     Route: 048

REACTIONS (5)
  - Nausea [Unknown]
  - Nausea [Unknown]
  - Diarrhoea [Unknown]
  - Vomiting [Unknown]
  - Vomiting [Unknown]

NARRATIVE: CASE EVENT DATE: 20150625
